FAERS Safety Report 20536450 (Version 1)
Quarter: 2022Q1

REPORT INFORMATION
  Report Type: Report from Study
  Country: AU (occurrence: AU)
  Receive Date: 20220302
  Receipt Date: 20220302
  Transmission Date: 20220423
  Serious: Yes (Other)
  Sender: FDA-Public Use
  Company Number: AU-JNJFOC-20210146091

PATIENT
  Age: 18 Year
  Sex: Male

DRUGS (2)
  1. STELARA [Suspect]
     Active Substance: USTEKINUMAB
     Indication: Off label use
     Route: 042
  2. STELARA [Suspect]
     Active Substance: USTEKINUMAB
     Route: 058

REACTIONS (5)
  - Salmonellosis [Recovering/Resolving]
  - Autoimmune hepatitis [Recovering/Resolving]
  - Irritable bowel syndrome [Recovering/Resolving]
  - Off label use [Unknown]
  - Product use in unapproved indication [Unknown]
